FAERS Safety Report 17801602 (Version 1)
Quarter: 2020Q2

REPORT INFORMATION
  Report Type: Spontaneous
  Country: US (occurrence: US)
  Receive Date: 20200518
  Receipt Date: 20200518
  Transmission Date: 20200714
  Serious: No
  Sender: FDA-Public Use
  Company Number: None

PATIENT
  Age: 58 Year
  Sex: Male
  Weight: 79.38 kg

DRUGS (2)
  1. BUPRENORPHINE/NALOXONE 8/2MG [Suspect]
     Active Substance: BUPRENORPHINE HYDROCHLORIDE\NALOXONE HYDROCHLORIDE
     Indication: DRUG USE DISORDER
     Dates: start: 20200103, end: 20200130
  2. BUPRENORPHINE/NALOXONE 8/2MG [Suspect]
     Active Substance: BUPRENORPHINE HYDROCHLORIDE\NALOXONE HYDROCHLORIDE
     Indication: DRUG USE DISORDER
     Dates: start: 20190627, end: 20191016

REACTIONS (4)
  - Product substitution issue [None]
  - Drug ineffective [None]
  - Disease recurrence [None]
  - Drug dependence [None]
